FAERS Safety Report 4545823-3 (Version None)
Quarter: 2005Q1

REPORT INFORMATION
  Report Type: 
  Country: None (occurrence: None)
  Receive Date: 20050103
  Receipt Date: 20041222
  Transmission Date: 20050727
  Serious: Yes (Hospitalization, Other)
  Sender: FDA-Public Use
  Company Number: 2004118122

PATIENT
  Age: 63 Year
  Sex: Male
  Weight: 154.223 kg

DRUGS (4)
  1. CELEBREX [Suspect]
     Indication: ARTHRITIS
     Dosage: 200 MG (100 MG, 2 IN 1 D), ORAL
     Route: 048
  2. BEXTRA [Suspect]
     Indication: ARTHRITIS
     Dosage: 20 MG (20 MG, 1 IN 1 D), ORAL
     Route: 048
     Dates: end: 20040101
  3. CANDESARTAN (CILEXETIL (CAMDESARTAN CILEXETIL) [Concomitant]
  4. ALLOPURINOL [Concomitant]

REACTIONS (8)
  - BLADDER CYST [None]
  - CARDIOMEGALY [None]
  - CEREBROVASCULAR ACCIDENT [None]
  - DYSPNOEA [None]
  - GASTRIC DISORDER [None]
  - HYPERCHLORHYDRIA [None]
  - POOR PERIPHERAL CIRCULATION [None]
  - RHEUMATOID ARTHRITIS [None]
